FAERS Safety Report 7039475-0 (Version None)
Quarter: 2010Q4

REPORT INFORMATION
  Report Type: 
  Country: None (occurrence: None)
  Receive Date: 20101012
  Receipt Date: 20101004
  Transmission Date: 20110411
  Serious: Yes (Life-Threatening, Hospitalization)
  Sender: FDA-Public Use
  Company Number: FR-ROCHE-731632

PATIENT
  Sex: Female

DRUGS (2)
  1. AVASTIN [Suspect]
     Route: 042
     Dates: start: 20100623, end: 20100716
  2. TAXOTERE [Suspect]
     Route: 042
     Dates: start: 20100623, end: 20100716

REACTIONS (2)
  - PERITONITIS [None]
  - SEPTIC SHOCK [None]
